FAERS Safety Report 7072870-2 (Version None)
Quarter: 2010Q4

REPORT INFORMATION
  Report Type: 
  Country: None (occurrence: None)
  Receive Date: 20101028
  Receipt Date: 20101028
  Transmission Date: 20110411
  Serious: Yes (Life-Threatening)
  Sender: FDA-Public Use
  Company Number: None

PATIENT
  Age: 38 Year
  Sex: Female
  Weight: 77.1115 kg

DRUGS (2)
  1. YAZ [Suspect]
     Indication: MENOPAUSAL DEPRESSION
     Dosage: DAILY PO (APPROX. 1-2 MONTHS)
     Route: 048
     Dates: start: 20091201, end: 20100115
  2. YAZ [Suspect]
     Indication: MENORRHAGIA
     Dosage: DAILY PO (APPROX. 1-2 MONTHS)
     Route: 048
     Dates: start: 20091201, end: 20100115

REACTIONS (1)
  - DEEP VEIN THROMBOSIS [None]
